FAERS Safety Report 8613084-1 (Version None)
Quarter: 2012Q3

REPORT INFORMATION
  Report Type: 
  Country: None (occurrence: None)
  Receive Date: 20120822
  Receipt Date: 20120726
  Transmission Date: 20120928
  Serious: Yes (Death, Other)
  Sender: FDA-Public Use
  Company Number: US-009507513-0906USA01971

PATIENT

DRUGS (19)
  1. ALEVE [Concomitant]
     Dosage: 220 MG, QD
     Route: 048
     Dates: start: 20060301
  2. ALBUTEROL [Concomitant]
     Dosage: 5 MG, QD
     Route: 055
     Dates: start: 20010101
  3. CHANTIX [Concomitant]
     Dosage: 2 MG, QD
     Route: 048
     Dates: start: 20060701
  4. PLAVIX [Concomitant]
     Dosage: 75 MG, QD
     Route: 048
     Dates: start: 20060812
  5. PLACEBO [Suspect]
     Indication: ACUTE CORONARY SYNDROME
     Route: 048
     Dates: start: 20060822
  6. SIMVASTATIN [Suspect]
     Indication: ACUTE CORONARY SYNDROME
     Route: 048
     Dates: start: 20060822
  7. SIMVASTATIN [Suspect]
     Indication: ACUTE CORONARY SYNDROME
     Route: 048
     Dates: start: 20060822
  8. PLACEBO [Suspect]
     Indication: ACUTE CORONARY SYNDROME
     Dosage: UNK
     Route: 048
     Dates: start: 20060822
  9. PAXIL CR [Concomitant]
     Dosage: 25 MG, QD
     Route: 048
     Dates: start: 20030101
  10. SIMVASTATIN [Suspect]
     Indication: ACUTE CORONARY SYNDROME
     Dosage: UNK
     Dates: start: 20060822
  11. FLUTICASONE PROPIONATE/SALMETEROL [Concomitant]
     Dosage: 500/100
     Route: 055
     Dates: start: 20010101
  12. COMBIVENT [Concomitant]
     Dosage: 2 DF, QD
     Route: 055
     Dates: start: 20010101
  13. ASPIRIN [Concomitant]
     Dosage: 81 MG, QD
     Route: 048
     Dates: start: 20040208
  14. FAMOTIDINE [Concomitant]
     Dosage: 2 DF, QD
     Route: 048
     Dates: start: 20050401
  15. SIMVASTATIN [Suspect]
     Indication: ACUTE CORONARY SYNDROME
     Route: 048
     Dates: start: 20060822
  16. LORCET-HD [Concomitant]
     Dosage: 5/500
     Route: 048
     Dates: start: 20071103
  17. EZETIMIBE [Suspect]
     Indication: ACUTE CORONARY SYNDROME
     Route: 048
     Dates: start: 20060822
  18. TOPROL-XL [Concomitant]
     Dosage: 100 MG, QD
     Route: 048
     Dates: start: 20040208
  19. FLEXERIL [Concomitant]
     Dosage: 10 MG, PRN
     Route: 048
     Dates: start: 20071103

REACTIONS (3)
  - ADRENAL MASS [None]
  - NEOPLASM [None]
  - LUNG NEOPLASM [None]
